FAERS Safety Report 6041061-6 (Version None)
Quarter: 2009Q1

REPORT INFORMATION
  Report Type: 
  Country: None (occurrence: None)
  Receive Date: 20090116
  Receipt Date: 20080807
  Transmission Date: 20090719
  Serious: No
  Sender: FDA-Public Use
  Company Number: US-BRISTOL-MYERS SQUIBB COMPANY-14293112

PATIENT
  Sex: Female

DRUGS (1)
  1. ABILIFY [Suspect]
     Dosage: INITIAL 30MG,INCREASED TO 40MG AND THE PATIENT TOOK 60 MG INSTEAD.

REACTIONS (2)
  - AKATHISIA [None]
  - INCORRECT DOSE ADMINISTERED [None]
